FAERS Safety Report 23267663 (Version 3)
Quarter: 2024Q1

REPORT INFORMATION
  Report Type: Spontaneous
  Country: JP (occurrence: JP)
  Receive Date: 20231206
  Receipt Date: 20240123
  Transmission Date: 20240410
  Serious: Yes (Hospitalization, Other)
  Sender: FDA-Public Use
  Company Number: JP-JNJFOC-20231205335

PATIENT
  Age: 3 Decade
  Sex: Male

DRUGS (11)
  1. EPOPROSTENOL [Suspect]
     Active Substance: EPOPROSTENOL
     Indication: Pulmonary arterial hypertension
     Dosage: DOSE UNKNOWN
     Route: 041
  2. EPOPROSTENOL [Suspect]
     Active Substance: EPOPROSTENOL
     Dosage: 34.4 NG/KG/MIN
     Route: 041
  3. EPOPROSTENOL [Suspect]
     Active Substance: EPOPROSTENOL
     Route: 041
  4. EPOPROSTENOL [Suspect]
     Active Substance: EPOPROSTENOL
     Route: 041
  5. EPOPROSTENOL [Suspect]
     Active Substance: EPOPROSTENOL
     Dosage: 30.6 NG/KG/MIN
     Route: 041
  6. EPOPROSTENOL [Suspect]
     Active Substance: EPOPROSTENOL
     Route: 041
  7. EPOPROSTENOL [Suspect]
     Active Substance: EPOPROSTENOL
     Route: 041
  8. OPSUMIT [Suspect]
     Active Substance: MACITENTAN
     Indication: Pulmonary arterial hypertension
     Route: 048
  9. RIOCIGUAT [Concomitant]
     Active Substance: RIOCIGUAT
     Indication: Pulmonary arterial hypertension
     Route: 048
  10. RIOCIGUAT [Concomitant]
     Active Substance: RIOCIGUAT
     Route: 048
  11. TADALAFIL [Concomitant]
     Active Substance: TADALAFIL
     Indication: Pulmonary arterial hypertension
     Route: 048

REACTIONS (7)
  - Right ventricular failure [Unknown]
  - Device related infection [Unknown]
  - Sepsis [Unknown]
  - Subclavian vein stenosis [Unknown]
  - Hypotension [Unknown]
  - Lung opacity [Unknown]
  - Pulmonary septal thickening [Unknown]
